FAERS Safety Report 8829227 (Version 1)
Quarter: 2012Q4

REPORT INFORMATION
  Report Type: Spontaneous
  Country: US (occurrence: None)
  Receive Date: 20121005
  Receipt Date: 20121005
  Transmission Date: 20130627
  Serious: Yes (Other)
  Sender: FDA-Public Use
  Company Number: None

PATIENT
  Age: 69 Year
  Sex: Female
  Weight: 45.36 kg

DRUGS (2)
  1. FORTEO [Suspect]
     Dates: start: 20120503
  2. FORTEO [Suspect]
     Dates: start: 20120926

REACTIONS (5)
  - Rash [None]
  - Vision blurred [None]
  - Nervousness [None]
  - Fatigue [None]
  - Arthropathy [None]
